FAERS Safety Report 9978806 (Version 1)
Quarter: 2014Q1

REPORT INFORMATION
  Report Type: Report from Study
  Country: US (occurrence: US)
  Receive Date: 20140306
  Receipt Date: 20140306
  Transmission Date: 20141002
  Serious: No
  Sender: FDA-Public Use
  Company Number: US-ABBVIE-13P-163-1172273-00

PATIENT
  Age: 52 Year
  Sex: Male
  Weight: 133.93 kg

DRUGS (8)
  1. HUMIRA [Suspect]
     Indication: CROHN^S DISEASE
     Dosage: LOADING DOSE
     Dates: start: 201305, end: 201305
  2. HUMIRA [Suspect]
     Dosage: SECOND DOSE
     Dates: start: 2013, end: 2013
  3. HUMIRA [Suspect]
     Dates: start: 2013
  4. CYCLOSPORINE [Suspect]
     Indication: PROPHYLAXIS AGAINST TRANSPLANT REJECTION
  5. CELLCEPT [Suspect]
     Indication: PROPHYLAXIS AGAINST TRANSPLANT REJECTION
  6. PREDNISONE [Suspect]
     Indication: PROPHYLAXIS AGAINST TRANSPLANT REJECTION
  7. AMLODIPINE [Concomitant]
     Indication: HYPERTENSION
  8. CARVEDILOL [Concomitant]
     Indication: HYPERTENSION

REACTIONS (2)
  - Injection site bruising [Not Recovered/Not Resolved]
  - Increased tendency to bruise [Unknown]
